FAERS Safety Report 22272376 (Version 8)
Quarter: 2023Q2

REPORT INFORMATION
  Report Type: Report from Study
  Country: IN (occurrence: IN)
  Receive Date: 20230502
  Receipt Date: 20230629
  Transmission Date: 20230721
  Serious: No
  Sender: FDA-Public Use
  Company Number: IN-002147023-NVSC2023IN094664

PATIENT
  Age: 52 Year
  Sex: Male
  Weight: 57 kg

DRUGS (10)
  1. OFATUMUMAB [Suspect]
     Active Substance: OFATUMUMAB
     Indication: Multiple sclerosis relapse
     Dosage: 20 MG, Q4W
     Route: 058
     Dates: start: 20191230, end: 20230416
  2. OFATUMUMAB [Suspect]
     Active Substance: OFATUMUMAB
     Dosage: 20 MG, Q4W
     Route: 058
     Dates: start: 20230531
  3. PLACEBO [Suspect]
     Active Substance: UNSPECIFIED INGREDIENT
     Indication: Multiple sclerosis relapse
     Dosage: UNK
     Route: 058
     Dates: start: 20200106
  4. BACLOFEN [Concomitant]
     Active Substance: BACLOFEN
     Indication: Myelopathy
     Dosage: UNK
     Route: 065
     Dates: start: 20200929
  5. BACLOFEN [Concomitant]
     Active Substance: BACLOFEN
     Dosage: UNK
     Route: 065
     Dates: start: 20210130
  6. PREGABALIN [Concomitant]
     Active Substance: PREGABALIN
     Indication: Myelopathy
     Dosage: UNK
     Route: 065
     Dates: start: 20200929
  7. TOLTERODINE [Concomitant]
     Active Substance: TOLTERODINE
     Indication: Spinal laminectomy
     Dosage: UNK
     Route: 065
     Dates: start: 20210626
  8. DALFAMPRIDINE [Concomitant]
     Active Substance: DALFAMPRIDINE
     Indication: Spinal laminectomy
     Dosage: UNK
     Route: 065
     Dates: start: 20210629
  9. CALCIUM CARBONATE\CHOLECALCIFEROL [Concomitant]
     Active Substance: CALCIUM CARBONATE\CHOLECALCIFEROL
     Indication: Spinal laminectomy
     Dosage: UNK
     Route: 065
     Dates: start: 20210629
  10. TOLPERITAS [Concomitant]
     Indication: Spinal laminectomy
     Dosage: UNK
     Route: 065
     Dates: start: 20210629

REACTIONS (1)
  - Furuncle [Not Recovered/Not Resolved]

NARRATIVE: CASE EVENT DATE: 20230326
